FAERS Safety Report 11109414 (Version 1)
Quarter: 2015Q2

REPORT INFORMATION
  Report Type: Spontaneous
  Country: US (occurrence: None)
  Receive Date: 20150511
  Receipt Date: 20150511
  Transmission Date: 20150821
  Serious: Yes (Other)
  Sender: FDA-Public Use
  Company Number: None

PATIENT
  Age: 6 Year
  Sex: Female

DRUGS (1)
  1. PEGINTRON [Suspect]
     Active Substance: PEGINTERFERON ALFA-2B
     Indication: HEPATITIS C
     Dosage: 10MCG, EVERY WEEK, SUBCUTANEOUSLY
     Route: 058
     Dates: start: 20130525, end: 20150508

REACTIONS (3)
  - Abnormal behaviour [None]
  - Mood swings [None]
  - Fear [None]

NARRATIVE: CASE EVENT DATE: 20150508
